FAERS Safety Report 5609009-3 (Version None)
Quarter: 2008Q1

REPORT INFORMATION
  Report Type: 
  Country: None (occurrence: None)
  Receive Date: 20080131
  Receipt Date: 20080123
  Transmission Date: 20080703
  Serious: Yes (Hospitalization, Other)
  Sender: FDA-Public Use
  Company Number: PHFR2008GB00511

PATIENT
  Age: 44 Year
  Sex: Female

DRUGS (2)
  1. CLOZARIL [Suspect]
     Indication: SCHIZOPHRENIA
     Dosage: 300 MG, BID
     Route: 048
     Dates: start: 20071011
  2. AMISULPRIDE [Concomitant]
     Dosage: 600 MG, QID
     Route: 048

REACTIONS (10)
  - ACUTE RESPIRATORY DISTRESS SYNDROME [None]
  - ALCOHOLISM [None]
  - CIRCULATORY COLLAPSE [None]
  - DRUG LEVEL DECREASED [None]
  - FALL [None]
  - HEMIPARESIS [None]
  - INTRACRANIAL VENOUS SINUS THROMBOSIS [None]
  - OVERDOSE [None]
  - THERMAL BURN [None]
  - TREATMENT NONCOMPLIANCE [None]
